FAERS Safety Report 17340571 (Version 1)
Quarter: 2020Q1

REPORT INFORMATION
  Report Type: Spontaneous
  Country: US (occurrence: US)
  Receive Date: 20200129
  Receipt Date: 20200129
  Transmission Date: 20200409
  Serious: Yes (Other)
  Sender: FDA-Public Use
  Company Number: US-PFIZER INC-2020036140

PATIENT
  Age: 4 Month
  Sex: Female

DRUGS (1)
  1. SOMATROPIN. [Suspect]
     Active Substance: SOMATROPIN
     Indication: PRADER-WILLI SYNDROME
     Dosage: 0.5 MG/M2, 1X/DAY

REACTIONS (2)
  - Sleep apnoea syndrome [Recovering/Resolving]
  - Condition aggravated [Recovering/Resolving]
